FAERS Safety Report 25682853 (Version 1)
Quarter: 2025Q3

REPORT INFORMATION
  Report Type: Report from Study
  Country: IN (occurrence: IN)
  Receive Date: 20250814
  Receipt Date: 20250814
  Transmission Date: 20251021
  Serious: Yes (Other)
  Sender: ROCHE
  Company Number: IN-ROCHE-10000362505

PATIENT
  Age: 7 Year
  Sex: Female

DRUGS (6)
  1. CELLCEPT [Suspect]
     Active Substance: MYCOPHENOLATE MOFETIL
     Indication: Systemic lupus erythematosus
     Route: 048
  2. AZITHRAL [AZITHROMYCIN] [Concomitant]
     Dosage: SYRUP- 6.5 ML, 5 DAYS
  3. ALBUTEROL [Concomitant]
     Active Substance: ALBUTEROL
     Dosage: SYRUP
  4. CETZINE [Concomitant]
     Dosage: SYRUP- 10 DAYS
  5. FOLVITE [Concomitant]
     Active Substance: FOLIC ACID
  6. ZENTEL [Concomitant]
     Active Substance: ALBENDAZOLE

REACTIONS (1)
  - Systemic lupus erythematosus [Unknown]

NARRATIVE: CASE EVENT DATE: 20210701
